FAERS Safety Report 22310891 (Version 8)
Quarter: 2024Q2

REPORT INFORMATION
  Report Type: Spontaneous
  Country: DE (occurrence: DE)
  Receive Date: 20230511
  Receipt Date: 20240606
  Transmission Date: 20240715
  Serious: Yes (Death, Hospitalization, Other)
  Sender: FDA-Public Use
  Company Number: DE-AMGEN-DEUSP2023075849

PATIENT
  Age: 8 Year
  Sex: Male

DRUGS (13)
  1. ADALIMUMAB [Suspect]
     Active Substance: ADALIMUMAB\ISOPROPYL ALCOHOL
     Indication: Graft versus host disease
     Dosage: UNK (DOSAGE1: UNIT-NA)
     Route: 065
     Dates: start: 202101
  2. CYCLOSPORINE [Suspect]
     Active Substance: CYCLOSPORINE
     Indication: Graft versus host disease
     Dosage: UNK
     Route: 065
  3. CYCLOSPORINE [Suspect]
     Active Substance: CYCLOSPORINE
     Indication: Immunosuppressant drug therapy
     Dosage: REDUCED DOSE
     Route: 065
  4. CYCLOSPORINE [Suspect]
     Active Substance: CYCLOSPORINE
     Indication: Bone marrow transplant
  5. METHOTREXATE [Suspect]
     Active Substance: METHOTREXATE
     Indication: Bone marrow transplant
     Dosage: UNK
     Route: 065
  6. METHOTREXATE [Suspect]
     Active Substance: METHOTREXATE
     Indication: Immunosuppressant drug therapy
     Dosage: REDUCED DOSE
     Route: 065
  7. METHOTREXATE [Suspect]
     Active Substance: METHOTREXATE
     Indication: Graft versus host disease
  8. ETOPOSIDE [Suspect]
     Active Substance: ETOPOSIDE
     Indication: Product used for unknown indication
     Dosage: UNK
     Route: 065
  9. THYMOCYTE IMMUNE GLOBULIN NOS [Suspect]
     Active Substance: THYMOCYTE IMMUNE GLOBULIN NOS
     Indication: Product used for unknown indication
     Dosage: UNK
     Route: 065
  10. METHYLPREDNISOLONE [Concomitant]
     Active Substance: METHYLPREDNISOLONE
     Indication: Graft versus host disease
     Dosage: UNK
     Route: 065
  11. SIROLIMUS [Concomitant]
     Active Substance: SIROLIMUS
     Indication: Product used for unknown indication
     Dosage: UNK
     Route: 065
  12. RUXOLITINIB [Concomitant]
     Active Substance: RUXOLITINIB
     Indication: Product used for unknown indication
     Dosage: UNK
     Route: 065
  13. IMMUNOGLOBULIN [Concomitant]
     Indication: Product used for unknown indication
     Dosage: IV IMMUNE-GLOBULIN
     Route: 065

REACTIONS (7)
  - Pneumonia bacterial [Fatal]
  - Parvovirus B19 infection [Fatal]
  - COVID-19 [Recovered/Resolved]
  - Drug ineffective [Unknown]
  - Alveolitis [Unknown]
  - Intentional product use issue [Unknown]
  - Off label use [Unknown]
